FAERS Safety Report 19715998 (Version 1)
Quarter: 2021Q3

REPORT INFORMATION
  Report Type: Spontaneous
  Country: US (occurrence: US)
  Receive Date: 20210818
  Receipt Date: 20210818
  Transmission Date: 20211014
  Serious: Yes (Life-Threatening, Hospitalization, Other)
  Sender: FDA-Public Use
  Company Number: US-BAYER-2021-191718

PATIENT
  Age: 15 Year
  Sex: Female

DRUGS (4)
  1. LEVONORGESTREL IUS [UNKNOWN] [Suspect]
     Active Substance: LEVONORGESTREL
     Dosage: UNK
     Route: 015
  2. PROGESTIN [Concomitant]
     Active Substance: PROGESTERONE
     Route: 030
  3. ETONOGESTREL [Concomitant]
     Active Substance: ETONOGESTREL
     Indication: CONTRACEPTION
     Route: 059
  4. NORETHISTERONE ACETATE [Suspect]
     Active Substance: NORETHINDRONE ACETATE
     Indication: HEAVY MENSTRUAL BLEEDING
     Dosage: 1 DF, TID
     Route: 048

REACTIONS (6)
  - Tumour rupture [Recovering/Resolving]
  - Hepatic adenoma [Recovering/Resolving]
  - Device expulsion [Recovered/Resolved]
  - Shock haemorrhagic [Recovered/Resolved]
  - Abnormal withdrawal bleeding [Recovered/Resolved]
  - Haemoperitoneum [Recovering/Resolving]
